FAERS Safety Report 10061290 (Version 2)
Quarter: 2014Q2

REPORT INFORMATION
  Report Type: Spontaneous
  Country: IT (occurrence: IT)
  Receive Date: 20140407
  Receipt Date: 20140425
  Transmission Date: 20141212
  Serious: Yes (Hospitalization)
  Sender: FDA-Public Use
  Company Number: IT-BRISTOL-MYERS SQUIBB COMPANY-20573994

PATIENT
  Age: 81 Year
  Sex: Female

DRUGS (6)
  1. COUMADIN TABS 5 MG [Suspect]
     Dosage: INTERRUPTED ON 09JUL2013
     Dates: start: 20120701
  2. LEVODOPA + BENSERAZIDE [Concomitant]
  3. CANRENONE [Concomitant]
  4. RAMIPRIL [Concomitant]
  5. FUROSEMIDE [Concomitant]
  6. OMEPRAZOLE [Concomitant]

REACTIONS (6)
  - Coagulopathy [Recovering/Resolving]
  - Malaise [Recovering/Resolving]
  - Asthenia [Recovering/Resolving]
  - Agitation [Recovering/Resolving]
  - Azotaemia [Recovering/Resolving]
  - Blood creatinine increased [Recovering/Resolving]
